FAERS Safety Report 13332393 (Version 1)
Quarter: 2017Q1

REPORT INFORMATION
  Report Type: Spontaneous
  Country: US (occurrence: US)
  Receive Date: 20170313
  Receipt Date: 20170313
  Transmission Date: 20170428
  Serious: Yes (Hospitalization)
  Sender: FDA-Public Use
  Company Number: None

PATIENT
  Age: 60 Year
  Sex: Female

DRUGS (9)
  1. METHOTREX [Concomitant]
  2. FISH OI [Concomitant]
  3. ENBREL [Suspect]
     Active Substance: ETANERCEPT
     Indication: RHEUMATOID ARTHRITIS
     Route: 058
     Dates: start: 201001
  4. METFFORMIN [Concomitant]
  5. VICTOZA [Concomitant]
     Active Substance: LIRAGLUTIDE
  6. LEFLUN [Concomitant]
  7. VI D [Concomitant]
  8. FOLC A ID [Concomitant]
  9. JANUVIA [Concomitant]
     Active Substance: SITAGLIPTIN PHOSPHATE

REACTIONS (3)
  - Loss of consciousness [None]
  - Limb injury [None]
  - Pneumonia [None]

NARRATIVE: CASE EVENT DATE: 20170307
